FAERS Safety Report 11802585 (Version 1)
Quarter: 2015Q4

REPORT INFORMATION
  Report Type: Spontaneous
  Country: US (occurrence: US)
  Receive Date: 20151204
  Receipt Date: 20151204
  Transmission Date: 20160305
  Serious: No
  Sender: FDA-Public Use
  Company Number: US-MYLANLABS-2015M1031847

PATIENT
  Age: 63 Year
  Sex: Male
  Weight: 120.18 kg

DRUGS (1)
  1. LIDOCAINE PATCH [Suspect]
     Active Substance: LIDOCAINE
     Indication: PAIN
     Dosage: 3 DF, 12 HRS ON AND 12 HRS OFF
     Route: 003
     Dates: start: 20150908, end: 20150916

REACTIONS (6)
  - Off label use [Recovered/Resolved]
  - Application site rash [Not Recovered/Not Resolved]
  - Product adhesion issue [Recovered/Resolved]
  - Application site papules [Not Recovered/Not Resolved]
  - Product quality issue [Recovered/Resolved]
  - Application site erythema [Not Recovered/Not Resolved]

NARRATIVE: CASE EVENT DATE: 20150908
